FAERS Safety Report 4713569-4 (Version None)
Quarter: 2005Q3

REPORT INFORMATION
  Report Type: 
  Country: None (occurrence: None)
  Receive Date: 20050713
  Receipt Date: 20050706
  Transmission Date: 20060218
  Serious: Yes (Other)
  Sender: FDA-Public Use
  Company Number: FR-BRISTOL-MYERS SQUIBB COMPANY-13030895

PATIENT
  Age: 33 Year
  Sex: Female

DRUGS (4)
  1. TAXOL [Suspect]
     Indication: KAPOSI'S SARCOMA
     Route: 042
     Dates: start: 20050614
  2. KALETRA [Concomitant]
  3. EPIVIR [Concomitant]
  4. VIREAD [Concomitant]

REACTIONS (2)
  - CHOLESTASIS [None]
  - CYTOLYTIC HEPATITIS [None]
